FAERS Safety Report 16183928 (Version 1)
Quarter: 2019Q2

REPORT INFORMATION
  Report Type: Spontaneous
  Country: US (occurrence: US)
  Receive Date: 20190308
  Receipt Date: 20190308
  Transmission Date: 20190711
  Serious: Yes (Other)
  Sender: FDA-Public Use
  Company Number: None

PATIENT
  Age: 75 Year
  Sex: Female
  Weight: 66.68 kg

DRUGS (5)
  1. TRIAMTERENE AND HYDROCHLOROTHIAZIDE [Suspect]
     Active Substance: HYDROCHLOROTHIAZIDE\TRIAMTERENE
  2. PERINDOPRIL [Suspect]
     Active Substance: PERINDOPRIL
     Indication: HYPERTENSION
     Dates: start: 2000, end: 20171212
  3. CLONIDINE PATCH [Suspect]
     Active Substance: CLONIDINE
  4. ISOSORBIDE. [Suspect]
     Active Substance: ISOSORBIDE
  5. METHYLDOPA. [Suspect]
     Active Substance: METHYLDOPA

REACTIONS (6)
  - Ocular toxicity [None]
  - Product dose omission [None]
  - Therapeutic response unexpected [None]
  - Brain injury [None]
  - Macular degeneration [None]
  - Sudden visual loss [None]

NARRATIVE: CASE EVENT DATE: 20171212
